FAERS Safety Report 14811501 (Version 3)
Quarter: 2018Q4

REPORT INFORMATION
  Report Type: Report from Study
  Country: US (occurrence: US)
  Receive Date: 20180425
  Receipt Date: 20181017
  Transmission Date: 20190204
  Serious: No
  Sender: FDA-Public Use
  Company Number: US-AMGEN-USASL2018039711

PATIENT
  Age: 64 Year
  Sex: Female
  Weight: 87.53 kg

DRUGS (2)
  1. REPATHA [Suspect]
     Active Substance: EVOLOCUMAB
     Indication: HYPERCHOLESTEROLAEMIA
     Dosage: 140 MG, Q2WK
     Route: 065
     Dates: start: 20180221, end: 2018
  2. REPATHA [Suspect]
     Active Substance: EVOLOCUMAB
     Indication: BLOOD CHOLESTEROL INCREASED

REACTIONS (13)
  - Headache [Recovered/Resolved]
  - Nasal congestion [Unknown]
  - Influenza like illness [Recovered/Resolved]
  - Fatigue [Recovered/Resolved]
  - Muscle spasms [Recovered/Resolved]
  - Back pain [Recovered/Resolved]
  - Vision blurred [Recovered/Resolved]
  - Dizziness [Recovered/Resolved]
  - Nausea [Recovered/Resolved]
  - Somnolence [Unknown]
  - Injection site bruising [Recovered/Resolved]
  - Pain in extremity [Recovered/Resolved]
  - Injection site pain [Recovered/Resolved]

NARRATIVE: CASE EVENT DATE: 2018
